FAERS Safety Report 10867368 (Version 3)
Quarter: 2016Q1

REPORT INFORMATION
  Report Type: Spontaneous
  Country: CA (occurrence: CA)
  Receive Date: 20150225
  Receipt Date: 20160307
  Transmission Date: 20160525
  Serious: Yes (Hospitalization, Other)
  Sender: FDA-Public Use
  Company Number: CA-009507513-1502CAN007871

PATIENT
  Age: 56 Year
  Sex: Female

DRUGS (13)
  1. PEGASYS [Suspect]
     Active Substance: PEGINTERFERON ALFA-2A
     Indication: CHRONIC HEPATITIS C
     Dosage: 180 MICROGRAM, QW, SOLUTION SUBCUTANEOUS
     Route: 058
  2. SOVALDI [Suspect]
     Active Substance: SOFOSBUVIR
     Indication: CHRONIC HEPATITIS C
     Dosage: 400 MG, QD (1 EVERY 1 DAY)
     Route: 048
  3. SIMEPREVIR [Suspect]
     Active Substance: SIMEPREVIR
     Indication: HEPATITIS C
  4. PEGETRON [Suspect]
     Active Substance: PEGINTERFERON ALFA-2B\RIBAVIRIN
     Dosage: RIBAVIRIN CAPSULE: 400MG, 1 EVERY 1 DAY
     Route: 048
  5. SOFOSBUVIR [Suspect]
     Active Substance: SOFOSBUVIR
     Indication: HEPATITIS C
     Dosage: 400 MG, QD (1 EVERY 1 DAY)
     Route: 048
  6. NADOLOL. [Concomitant]
     Active Substance: NADOLOL
     Indication: PRODUCT USED FOR UNKNOWN INDICATION
     Route: 065
  7. PEGETRON [Suspect]
     Active Substance: PEGINTERFERON ALFA-2B\RIBAVIRIN
     Indication: CHRONIC HEPATITIS C
     Dosage: PEGINTERFERON ALFA-2B: REDIPEN/CLEARCLICK SINGLE DOSE DELIVERY SYSTEM
     Route: 065
  8. SIMEPREVIR [Suspect]
     Active Substance: SIMEPREVIR
     Indication: CHRONIC HEPATITIS C
     Dosage: 150 MG, QD (1 EVERY 1 DAY)
     Route: 048
  9. RIBAVIRIN. [Suspect]
     Active Substance: RIBAVIRIN
     Indication: HEPATITIS C
     Dosage: 600 MG, QD
     Route: 048
  10. METFORMIN [Concomitant]
     Active Substance: METFORMIN HYDROCHLORIDE
     Indication: PRODUCT USED FOR UNKNOWN INDICATION
     Route: 065
  11. PEGETRON [Suspect]
     Active Substance: PEGINTERFERON ALFA-2B\RIBAVIRIN
     Dosage: RIBAVIRIN CAPSULE: 600MG, 1 EVERY 1 DAY
     Route: 048
  12. PEGETRON [Suspect]
     Active Substance: PEGINTERFERON ALFA-2B\RIBAVIRIN
     Dosage: RIBAVIRIN CAPSULE: 1000MG, 1 EVERY 1 DAY
     Route: 048
  13. BISACODYL. [Concomitant]
     Active Substance: BISACODYL

REACTIONS (19)
  - Pyrexia [Unknown]
  - Blood test abnormal [Unknown]
  - Blood albumin decreased [Unknown]
  - Chills [Unknown]
  - Diarrhoea [Unknown]
  - International normalised ratio increased [Unknown]
  - Blood bilirubin abnormal [Unknown]
  - Urinary tract infection [Not Recovered/Not Resolved]
  - Off label use [Unknown]
  - Jaundice [Unknown]
  - Yellow skin [Unknown]
  - Renal failure [Unknown]
  - Hepatic function abnormal [Unknown]
  - Portal vein thrombosis [Not Recovered/Not Resolved]
  - Hepatic failure [Unknown]
  - Abdominal pain [Unknown]
  - Nausea [Unknown]
  - Hepatorenal syndrome [Not Recovered/Not Resolved]
  - Ocular icterus [Unknown]
